FAERS Safety Report 7645600-0 (Version None)
Quarter: 2011Q3

REPORT INFORMATION
  Report Type: 
  Country: None (occurrence: None)
  Receive Date: 20110729
  Receipt Date: 20110721
  Transmission Date: 20111222
  Serious: No
  Sender: FDA-Public Use
  Company Number: US-PFIZER INC-2011166778

PATIENT
  Sex: Male

DRUGS (2)
  1. LATANOPROST [Suspect]
     Dosage: UNK
  2. XALATAN [Suspect]
     Dosage: 1 GTT IN EACH EYE, 1X/DAY
     Dates: start: 20100101

REACTIONS (2)
  - ERYTHEMA OF EYELID [None]
  - OCULAR HYPERAEMIA [None]
